FAERS Safety Report 21499987 (Version 1)
Quarter: 2022Q4

REPORT INFORMATION
  Report Type: Spontaneous
  Country: US (occurrence: US)
  Receive Date: 20221024
  Receipt Date: 20221024
  Transmission Date: 20230113
  Serious: No
  Sender: FDA-Public Use
  Company Number: US-PFIZER INC-PV202200087446

PATIENT
  Age: 65 Year
  Sex: Male

DRUGS (2)
  1. XELJANZ [Suspect]
     Active Substance: TOFACITINIB CITRATE
     Indication: Psoriatic arthropathy
     Dosage: UNK
  2. XELJANZ [Suspect]
     Active Substance: TOFACITINIB CITRATE
     Indication: Diffuse idiopathic skeletal hyperostosis

REACTIONS (3)
  - Joint range of motion decreased [Unknown]
  - Loss of personal independence in daily activities [Unknown]
  - Off label use [Unknown]
